FAERS Safety Report 4754152-4 (Version None)
Quarter: 2005Q3

REPORT INFORMATION
  Report Type: 
  Country: None (occurrence: None)
  Receive Date: 20050826
  Receipt Date: 20040225
  Transmission Date: 20060218
  Serious: Yes (Death, Hospitalization)
  Sender: FDA-Public Use
  Company Number: JP-ABBOTT-05P-087-0308050-00

PATIENT
  Age: 55 Year
  Sex: Male

DRUGS (5)
  1. ERYTHROCIN [Suspect]
     Indication: NOCARDIOSIS
     Route: 042
     Dates: start: 20030628, end: 20030730
  2. BACTA [Suspect]
     Indication: NOCARDIOSIS
     Route: 048
     Dates: start: 20030702, end: 20030730
  3. TACROLIMUS [Concomitant]
     Indication: RENAL TRANSPLANT
     Dates: start: 20030126
  4. MYCOPHENOLATE MOFETIL [Concomitant]
     Indication: RENAL TRANSPLANT
     Route: 048
     Dates: start: 20030126
  5. PREDNISONE TAB [Concomitant]
     Indication: RENAL TRANSPLANT
     Dates: start: 20030126

REACTIONS (3)
  - MULTI-ORGAN FAILURE [None]
  - PANCREATITIS ACUTE [None]
  - RESPIRATORY FAILURE [None]
